FAERS Safety Report 4691791-3 (Version None)
Quarter: 2005Q2

REPORT INFORMATION
  Report Type: 
  Country: None (occurrence: None)
  Receive Date: 20050615
  Receipt Date: 20050615
  Transmission Date: 20051028
  Serious: Yes (Death)
  Sender: FDA-Public Use
  Company Number: None

PATIENT
  Sex: Male
  Weight: 90 kg

DRUGS (4)
  1. PACLITAXEL [Suspect]
     Dates: start: 20050110, end: 20050207
  2. CISPLATIN [Suspect]
     Dates: start: 20050110, end: 20050211
  3. FLUOROURACIL [Suspect]
     Dosage: CONTINUOUS INFUSION
     Route: 042
     Dates: start: 20050110, end: 20050211
  4. RADIATION [Suspect]
     Dosage: 5040 RADS IN 28 FRACTIONS

REACTIONS (14)
  - ANURIA [None]
  - ATRIAL FIBRILLATION [None]
  - BLOOD PRESSURE DECREASED [None]
  - BODY TEMPERATURE INCREASED [None]
  - CITROBACTER INFECTION [None]
  - CONFUSIONAL STATE [None]
  - DIALYSIS [None]
  - ENTEROBACTER INFECTION [None]
  - OESOPHAGEAL DISORDER [None]
  - PLEURAL EFFUSION [None]
  - PNEUMONIA [None]
  - POST PROCEDURAL COMPLICATION [None]
  - PSEUDOMONAS INFECTION [None]
  - RESPIRATORY DISTRESS [None]
